FAERS Safety Report 8789890 (Version 3)
Quarter: 2012Q4

REPORT INFORMATION
  Report Type: 
  Country: NO (occurrence: NO)
  Receive Date: 20120917
  Receipt Date: 20121113
  Transmission Date: 20130627
  Serious: Yes (Disabling)
  Sender: FDA-Public Use
  Company Number: NO-PFIZER INC-2012222399

PATIENT
  Age: 50 Year
  Sex: Female

DRUGS (4)
  1. AROMASIN [Suspect]
     Indication: BREAST CANCER FEMALE
     Dosage: 25 mg, UNK
     Dates: start: 201206, end: 20120830
  2. FEMARA [Suspect]
     Indication: BREAST CANCER
     Dosage: UNK
     Dates: start: 20120110, end: 201206
  3. TAMOXIFEN CITRATE [Suspect]
     Indication: BREAST CANCER
     Dosage: UNK
     Dates: start: 200805, end: 20120110
  4. MAREVAN [Concomitant]
     Indication: HEART VALVE DISORDERS
     Dosage: UNK
     Dates: start: 1994

REACTIONS (18)
  - Pulmonary congestion [Recovering/Resolving]
  - Dyspnoea [Recovering/Resolving]
  - Chest discomfort [Recovering/Resolving]
  - Meniscus injury [Recovering/Resolving]
  - Musculoskeletal stiffness [Recovering/Resolving]
  - Gait disturbance [Recovering/Resolving]
  - Myalgia [Recovering/Resolving]
  - Ligament pain [Recovering/Resolving]
  - Back pain [Recovering/Resolving]
  - Activities of daily living impaired [Recovering/Resolving]
  - Hot flush [Recovering/Resolving]
  - Rash [Recovering/Resolving]
  - Pruritus [Recovering/Resolving]
  - Arthralgia [Recovering/Resolving]
  - Insomnia [Recovering/Resolving]
  - Fatigue [Recovering/Resolving]
  - Alopecia [Recovering/Resolving]
  - Pyrexia [Recovering/Resolving]
